FAERS Safety Report 12107297 (Version 2)
Quarter: 2016Q1

REPORT INFORMATION
  Report Type: Report from Study
  Country: BR (occurrence: BR)
  Receive Date: 20160223
  Receipt Date: 20160314
  Transmission Date: 20160526
  Serious: Yes (Other)
  Sender: FDA-Public Use
  Company Number: PHHY2016BR022929

PATIENT
  Age: 9 Year
  Sex: Female
  Weight: 44 kg

DRUGS (2)
  1. ILARIS [Suspect]
     Active Substance: CANAKINUMAB
     Indication: AUTOINFLAMMATORY DISEASE
     Dosage: 150 MG, ONCE EVERY 8 WEEKS
     Route: 058
     Dates: start: 20150805
  2. ILARIS [Suspect]
     Active Substance: CANAKINUMAB
     Dosage: UNK
     Route: 058
     Dates: start: 20160229

REACTIONS (9)
  - Full blood count decreased [Unknown]
  - Pyrexia [Not Recovered/Not Resolved]
  - Eye pain [Recovered/Resolved]
  - Headache [Recovered/Resolved]
  - Platelet count decreased [Not Recovered/Not Resolved]
  - Product use issue [Unknown]
  - Influenza [Not Recovered/Not Resolved]
  - Abdominal pain upper [Recovered/Resolved]
  - Polymerase chain reaction positive [Not Recovered/Not Resolved]

NARRATIVE: CASE EVENT DATE: 20160205
